FAERS Safety Report 10833865 (Version 1)
Quarter: 2015Q1

REPORT INFORMATION
  Report Type: Report from Study
  Country: US (occurrence: US)
  Receive Date: 20150219
  Receipt Date: 20150219
  Transmission Date: 20150721
  Serious: No
  Sender: FDA-Public Use
  Company Number: US-ABBVIE-14P-163-1210712-00

PATIENT
  Age: 55 Year
  Sex: Female
  Weight: 90.8 kg

DRUGS (9)
  1. ZYRTEC [Concomitant]
     Active Substance: CETIRIZINE HYDROCHLORIDE
     Indication: HYPERSENSITIVITY
  2. HUMIRA [Suspect]
     Active Substance: ADALIMUMAB
     Indication: COLITIS ULCERATIVE
     Dosage: ONE DOSE
     Dates: start: 201311, end: 201311
  3. HUMIRA [Suspect]
     Active Substance: ADALIMUMAB
     Dosage: ONE DOSE, TWO WEEKS AFTER 160 MG DOSE
     Dates: start: 2013, end: 2013
  4. HYDROCORTISONE ENEMA [Concomitant]
     Indication: COLITIS ULCERATIVE
  5. PROTONIX [Concomitant]
     Active Substance: PANTOPRAZOLE SODIUM
     Indication: GASTROOESOPHAGEAL REFLUX DISEASE
  6. HUMIRA [Suspect]
     Active Substance: ADALIMUMAB
     Dosage: FOUR WEEKS AFTER 160 MG DOSE
     Dates: start: 2013, end: 20140124
  7. DYAZIDE [Concomitant]
     Active Substance: HYDROCHLOROTHIAZIDE\TRIAMTERENE
     Indication: HYPERTENSION
  8. LISINOPRIL. [Concomitant]
     Active Substance: LISINOPRIL
     Indication: HYPERTENSION
  9. NEURONTIN [Concomitant]
     Active Substance: GABAPENTIN
     Indication: BACK PAIN

REACTIONS (13)
  - Rib fracture [Recovered/Resolved]
  - Cellulitis [Recovered/Resolved]
  - Inflammation [Not Recovered/Not Resolved]
  - Nasopharyngitis [Recovered/Resolved]
  - Nausea [Recovered/Resolved]
  - Diarrhoea [Recovered/Resolved]
  - Erythema [Not Recovered/Not Resolved]
  - Vomiting [Recovered/Resolved]
  - Skeletal injury [Recovered/Resolved]
  - Laceration [Recovered/Resolved]
  - Cough [Recovered/Resolved]
  - Impaired healing [Unknown]
  - Lobar pneumonia [Recovered/Resolved]

NARRATIVE: CASE EVENT DATE: 2013
